FAERS Safety Report 25826099 (Version 1)
Quarter: 2025Q3

REPORT INFORMATION
  Report Type: Spontaneous
  Country: US (occurrence: US)
  Receive Date: 20250919
  Receipt Date: 20250919
  Transmission Date: 20251021
  Serious: No
  Sender: BIOMARIN
  Company Number: US-BIOMARINAP-US-2025-168814

PATIENT
  Age: 11 Year
  Sex: Male

DRUGS (1)
  1. VOXZOGO [Suspect]
     Active Substance: VOSORITIDE
     Indication: Osteochondrodysplasia

REACTIONS (3)
  - Weight increased [Unknown]
  - Headache [Unknown]
  - Muscle spasms [Unknown]
